FAERS Safety Report 15616312 (Version 1)
Quarter: 2018Q4

REPORT INFORMATION
  Report Type: Spontaneous
  Country: US (occurrence: US)
  Receive Date: 20181114
  Receipt Date: 20181114
  Transmission Date: 20190205
  Serious: Yes (Hospitalization, Other)
  Sender: FDA-Public Use
  Company Number: US-GLAXOSMITHKLINE-A0058661A

PATIENT
  Age: 63 Year
  Sex: Female

DRUGS (10)
  1. CLARITIN [Concomitant]
     Active Substance: LORATADINE
  2. PREMARIN [Concomitant]
     Active Substance: ESTROGENS, CONJUGATED
  3. CARDURA [Concomitant]
     Active Substance: DOXAZOSIN MESYLATE
     Indication: HYPERTENSION
  4. FIORINAL [Concomitant]
     Active Substance: ASPIRIN\BUTALBITAL\CAFFEINE
     Indication: ARTHRITIS
  5. PEPCID [Concomitant]
     Active Substance: FAMOTIDINE
  6. IMITREX [Suspect]
     Active Substance: SUMATRIPTAN SUCCINATE
     Indication: MIGRAINE
     Dosage: 25 MG, PRN
     Route: 048
  7. REGLAN [Concomitant]
     Active Substance: METOCLOPRAMIDE HYDROCHLORIDE
     Indication: NAUSEA
  8. ANTIVERT [Concomitant]
     Active Substance: MECLIZINE HYDROCHLORIDE
     Indication: VERTIGO
  9. IMITREX [Suspect]
     Active Substance: SUMATRIPTAN SUCCINATE
     Dosage: UNK UNK, TID
  10. SYNTHROID [Concomitant]
     Active Substance: LEVOTHYROXINE SODIUM

REACTIONS (7)
  - Chest pain [Unknown]
  - Myocardial infarction [Recovered/Resolved]
  - Arteriospasm coronary [Unknown]
  - Hyperhidrosis [Unknown]
  - Dyspepsia [Unknown]
  - Eructation [Unknown]
  - Asthenia [Unknown]

NARRATIVE: CASE EVENT DATE: 19971208
